FAERS Safety Report 18097419 (Version 1)
Quarter: 2020Q3

REPORT INFORMATION
  Report Type: Spontaneous
  Country: US (occurrence: US)
  Receive Date: 20200731
  Receipt Date: 20200731
  Transmission Date: 20201103
  Serious: Yes (Death, Other)
  Sender: FDA-Public Use
  Company Number: NVSC2020US213328

PATIENT

DRUGS (1)
  1. DECITABINE. [Suspect]
     Active Substance: DECITABINE
     Indication: ACUTE MYELOID LEUKAEMIA
     Dosage: 20 MG/M2 FOR 1 CYCLE
     Route: 065

REACTIONS (4)
  - Respiratory syncytial virus infection [Unknown]
  - Neutropenia [Unknown]
  - Acute myeloid leukaemia [Fatal]
  - Malignant neoplasm progression [Fatal]
